FAERS Safety Report 4690076-9 (Version None)
Quarter: 2005Q2

REPORT INFORMATION
  Report Type: 
  Country: None (occurrence: None)
  Receive Date: 20050614
  Receipt Date: 20050606
  Transmission Date: 20051028
  Serious: Yes (Other)
  Sender: FDA-Public Use
  Company Number: 26740

PATIENT
  Age: 54 Year
  Sex: Male

DRUGS (9)
  1. THEOPHYLLINE [Suspect]
     Indication: ASTHMA
     Dosage: 400 MG (200 MG, 2 IN 1 DAY(S))
     Route: 048
     Dates: start: 20050506, end: 20050519
  2. ATROVENT [Suspect]
     Indication: ASTHMA
     Dosage: 2 PUFFS 4 TIMES DAILY
     Route: 055
     Dates: start: 20050506, end: 20050519
  3. LEVOFLOXACIN [Suspect]
     Indication: ASTHMA
     Dosage: 1000 MG (500 MG, 2 IN 1 DAYS (S))
     Route: 048
     Dates: start: 20050511, end: 20020518
  4. PREDNISOLONE [Concomitant]
  5. ASPIRIN [Concomitant]
  6. AMLODIPINE [Concomitant]
  7. PERINDOPRIL [Concomitant]
  8. BISOPROLOL FUMARATE [Concomitant]
  9. ALBUTEROL [Concomitant]

REACTIONS (7)
  - ARTHRALGIA [None]
  - DYSPHAGIA [None]
  - DYSPNOEA EXERTIONAL [None]
  - EYE SWELLING [None]
  - HYPERSENSITIVITY [None]
  - SWELLING FACE [None]
  - URTICARIA [None]
